FAERS Safety Report 24880034 (Version 1)
Quarter: 2025Q1

REPORT INFORMATION
  Report Type: Spontaneous
  Country: US (occurrence: US)
  Receive Date: 20250123
  Receipt Date: 20250123
  Transmission Date: 20250408
  Serious: No
  Sender: PFIZER
  Company Number: US-PFIZER INC-202500016490

PATIENT
  Age: 66 Year
  Sex: Female

DRUGS (20)
  1. IBRANCE [Suspect]
     Active Substance: PALBOCICLIB
     Indication: Breast cancer female
     Route: 048
  2. LORAZEPAM [Concomitant]
     Active Substance: LORAZEPAM
  3. VITAMIN D3 [Concomitant]
     Active Substance: CHOLECALCIFEROL
  4. ACETAMINOPHEN [Concomitant]
     Active Substance: ACETAMINOPHEN
  5. PRAVASTATIN SODIUM [Concomitant]
     Active Substance: PRAVASTATIN SODIUM
  6. MINERALS\VITAMINS [Concomitant]
     Active Substance: MINERALS\VITAMINS
  7. METHIMAZOLE [Concomitant]
     Active Substance: METHIMAZOLE
  8. MELOXICAM [Concomitant]
     Active Substance: MELOXICAM
  9. LOSARTAN POTASSIUM [Concomitant]
     Active Substance: LOSARTAN POTASSIUM
  10. KLOR-CON M20 [Concomitant]
     Active Substance: POTASSIUM CHLORIDE
  11. FUROSEMIDE [Concomitant]
     Active Substance: FUROSEMIDE
  12. FAMOTIDINE [Concomitant]
     Active Substance: FAMOTIDINE
  13. EZETIMIBE [Concomitant]
     Active Substance: EZETIMIBE
  14. DIPHENHYDRAMINE [Concomitant]
     Active Substance: DIPHENHYDRAMINE
  15. CALCIUM CITRATE + D3 [Concomitant]
  16. ASPIRIN [Concomitant]
     Active Substance: ASPIRIN
  17. ATENOLOL [Concomitant]
     Active Substance: ATENOLOL
  18. SERTRALINE HYDROCHLORIDE [Concomitant]
     Active Substance: SERTRALINE HYDROCHLORIDE
  19. SOLIFENACIN SUCCINATE [Concomitant]
     Active Substance: SOLIFENACIN SUCCINATE
  20. ELIQUIS [Concomitant]
     Active Substance: APIXABAN

REACTIONS (1)
  - Neoplasm progression [Unknown]
